FAERS Safety Report 5012076-1 (Version None)
Quarter: 2006Q2

REPORT INFORMATION
  Report Type: 
  Country: None (occurrence: None)
  Receive Date: 20060526
  Receipt Date: 20060522
  Transmission Date: 20061013
  Serious: Yes (Other)
  Sender: FDA-Public Use
  Company Number: ES-GLAXOSMITHKLINE-B0425241A

PATIENT
  Age: 62 Year
  Sex: Female

DRUGS (1)
  1. ZYNTABAC [Suspect]
     Indication: SMOKING CESSATION THERAPY
     Dosage: 1TAB PER DAY
     Route: 048
     Dates: start: 20060201, end: 20060201

REACTIONS (9)
  - ANAPHYLACTIC SHOCK [None]
  - APHONIA [None]
  - DYSPHONIA [None]
  - HYPERSENSITIVITY [None]
  - LARYNGEAL OEDEMA [None]
  - PRURITUS [None]
  - RASH [None]
  - RESPIRATORY DISORDER [None]
  - VOCAL CORD INFLAMMATION [None]
